FAERS Safety Report 12689258 (Version 1)
Quarter: 2020Q3

REPORT INFORMATION
  Report Type: Report from Study
  Country: ZA (occurrence: ZA)
  Receive Date: 20160826
  Receipt Date: 20160826
  Transmission Date: 20201105
  Serious: Yes (Hospitalization)
  Sender: FDA-Public Use
  Company Number: ZA-JNJFOC-20160813559

PATIENT
  Age: 63 Year
  Sex: Female
  Weight: 77.2 kg

DRUGS (18)
  1. YONDELIS [Suspect]
     Active Substance: TRABECTEDIN
     Route: 042
  2. YONDELIS [Suspect]
     Active Substance: TRABECTEDIN
     Indication: NEOPLASM MALIGNANT
     Dosage: MEDICATION KIT: 100032, 100041
     Route: 042
     Dates: start: 20160419
  3. DEXAMETHASONE. [Concomitant]
     Active Substance: DEXAMETHASONE
     Indication: PREMEDICATION
     Route: 041
     Dates: start: 20160419
  4. NEULASTIM [Concomitant]
     Active Substance: PEGFILGRASTIM
     Indication: NEUTROPENIA
     Route: 058
     Dates: start: 20160428, end: 20160428
  5. NEULASTIM [Concomitant]
     Active Substance: PEGFILGRASTIM
     Indication: PROPHYLAXIS
     Route: 058
     Dates: start: 20160428, end: 20160428
  6. NEULASTIM [Concomitant]
     Active Substance: PEGFILGRASTIM
     Indication: NEUTROPENIA
     Route: 058
     Dates: start: 20160420
  7. CLOPAMON [Concomitant]
     Active Substance: METOCLOPRAMIDE
     Indication: NAUSEA
     Route: 048
     Dates: start: 20160426
  8. R?LOC [Concomitant]
     Indication: GASTROINTESTINAL DISORDER THERAPY
     Route: 041
     Dates: start: 20160419
  9. DOXIL [Suspect]
     Active Substance: DOXORUBICIN HYDROCHLORIDE
     Route: 042
  10. DOXIL [Suspect]
     Active Substance: DOXORUBICIN HYDROCHLORIDE
     Indication: NEOPLASM MALIGNANT
     Dosage: MEDICATION KIT: 80437, 80438, 80439
     Route: 042
     Dates: start: 20160419
  11. ONICIT [Concomitant]
     Active Substance: PALONOSETRON HYDROCHLORIDE
     Indication: PROPHYLAXIS OF NAUSEA AND VOMITING
     Route: 041
     Dates: start: 20160419
  12. NEULASTIM [Concomitant]
     Active Substance: PEGFILGRASTIM
     Indication: PROPHYLAXIS
     Route: 058
     Dates: start: 20160420
  13. PARACETAMOL [Concomitant]
     Active Substance: ACETAMINOPHEN
     Indication: ABDOMINAL PAIN
     Route: 048
     Dates: start: 20160426
  14. CIPROBAY URO [Concomitant]
     Indication: NEUTROPENIA
     Route: 048
     Dates: start: 20160426, end: 20160503
  15. CANNABIS [Concomitant]
     Active Substance: CANNABIS SATIVA SUBSP. INDICA TOP
     Indication: ABDOMINAL PAIN
     Route: 048
     Dates: start: 201604
  16. APREPITANT. [Concomitant]
     Active Substance: APREPITANT
     Indication: PROPHYLAXIS OF NAUSEA AND VOMITING
     Route: 048
     Dates: start: 20160420
  17. APREPITANT. [Concomitant]
     Active Substance: APREPITANT
     Indication: PROPHYLAXIS OF NAUSEA AND VOMITING
     Route: 048
     Dates: start: 20160419
  18. CIPROBAY URO [Concomitant]
     Indication: NEUTROPENIA
     Route: 048
     Dates: start: 20160816

REACTIONS (3)
  - Vomiting [Recovered/Resolved]
  - Diarrhoea [Recovered/Resolved]
  - Small intestinal obstruction [Not Recovered/Not Resolved]

NARRATIVE: CASE EVENT DATE: 20160813
